FAERS Safety Report 9804131 (Version 2)
Quarter: 2014Q1

REPORT INFORMATION
  Report Type: Spontaneous
  Country: IT (occurrence: IT)
  Receive Date: 20140108
  Receipt Date: 20140307
  Transmission Date: 20141002
  Serious: Yes (Hospitalization)
  Sender: FDA-Public Use
  Company Number: IT-WATSON-2013-24309

PATIENT
  Age: 83 Year
  Sex: Male

DRUGS (4)
  1. RAMIPRIL (UNKNOWN) [Suspect]
     Indication: PRODUCT USED FOR UNKNOWN INDICATION
     Dosage: 2.5 MG, DAILY
     Route: 048
     Dates: start: 20100101, end: 20131119
  2. LASIX                              /00032601/ [Concomitant]
     Indication: PRODUCT USED FOR UNKNOWN INDICATION
     Dosage: 25 MG, UNK
     Route: 048
  3. CARDIOASPIRIN [Concomitant]
     Dosage: 100 MG, UNK
     Route: 048
  4. TERAPROST [Concomitant]
     Indication: PRODUCT USED FOR UNKNOWN INDICATION
     Dosage: 2 MG, UNK
     Route: 048
     Dates: start: 20130101, end: 20131119

REACTIONS (2)
  - Renal failure acute [Recovered/Resolved]
  - Hypokalaemia [Recovered/Resolved]
